FAERS Safety Report 7995900-X (Version None)
Quarter: 2011Q4

REPORT INFORMATION
  Report Type: 
  Country: None (occurrence: None)
  Receive Date: 20111220
  Receipt Date: 20111213
  Transmission Date: 20120403
  Serious: Yes (Other)
  Sender: FDA-Public Use
  Company Number: US-ROCHE-790238

PATIENT
  Sex: Female
  Weight: 76.272 kg

DRUGS (2)
  1. TRIPHASIL-21 [Concomitant]
     Indication: CONTRACEPTION
  2. ACCUTANE [Suspect]
     Indication: ACNE CYSTIC
     Route: 065
     Dates: start: 20010417, end: 20011010

REACTIONS (4)
  - INFLAMMATORY BOWEL DISEASE [None]
  - XEROSIS [None]
  - EMOTIONAL DISTRESS [None]
  - COLITIS ULCERATIVE [None]
